FAERS Safety Report 6845528-X (Version None)
Quarter: 2010Q3

REPORT INFORMATION
  Report Type: 
  Country: None (occurrence: None)
  Receive Date: 20100713
  Receipt Date: 20100630
  Transmission Date: 20110219
  Serious: Yes (Hospitalization, Other)
  Sender: FDA-Public Use
  Company Number: RB-09575-2010

PATIENT
  Age: 30 Year
  Sex: Male

DRUGS (1)
  1. SUBOXONE [Suspect]
     Indication: DRUG DEPENDENCE
     Dosage: (36 MG QD SUBLINGUAL)
     Route: 060
     Dates: start: 20091101

REACTIONS (3)
  - COLLAPSE OF LUNG [None]
  - NASAL CONGESTION [None]
  - NASOPHARYNGITIS [None]
